FAERS Safety Report 25261092 (Version 1)
Quarter: 2025Q2

REPORT INFORMATION
  Report Type: Spontaneous
  Country: US (occurrence: US)
  Receive Date: 20250501
  Receipt Date: 20250501
  Transmission Date: 20250717
  Serious: Yes (Other)
  Sender: MYLAN
  Company Number: US-MYLANLABS-2025M1036852

PATIENT
  Age: 69 Year
  Sex: Female

DRUGS (12)
  1. GABAPENTIN [Suspect]
     Active Substance: GABAPENTIN
     Indication: Product used for unknown indication
  2. GABAPENTIN [Suspect]
     Active Substance: GABAPENTIN
  3. GABAPENTIN [Suspect]
     Active Substance: GABAPENTIN
     Route: 065
  4. GABAPENTIN [Suspect]
     Active Substance: GABAPENTIN
     Route: 065
  5. GABAPENTIN [Suspect]
     Active Substance: GABAPENTIN
  6. GABAPENTIN [Suspect]
     Active Substance: GABAPENTIN
  7. GABAPENTIN [Suspect]
     Active Substance: GABAPENTIN
     Route: 065
  8. GABAPENTIN [Suspect]
     Active Substance: GABAPENTIN
     Route: 065
  9. LATUDA [Suspect]
     Active Substance: LURASIDONE HYDROCHLORIDE
     Indication: Product used for unknown indication
  10. LATUDA [Suspect]
     Active Substance: LURASIDONE HYDROCHLORIDE
     Route: 065
  11. LATUDA [Suspect]
     Active Substance: LURASIDONE HYDROCHLORIDE
     Route: 065
  12. LATUDA [Suspect]
     Active Substance: LURASIDONE HYDROCHLORIDE

REACTIONS (1)
  - Drug dependence [Unknown]
